FAERS Safety Report 10130597 (Version 2)
Quarter: 2014Q2

REPORT INFORMATION
  Report Type: Report from Study
  Country: JP (occurrence: JP)
  Receive Date: 20140428
  Receipt Date: 20140516
  Transmission Date: 20141212
  Serious: Yes (Life-Threatening)
  Sender: FDA-Public Use
  Company Number: JP-009507513-1404JPN013187

PATIENT
  Sex: 0

DRUGS (3)
  1. TEMOZOLOMIDE [Suspect]
     Indication: GLIOBLASTOMA
     Dosage: 75 MG/CM^2/DAY, 7 DAYS/WEEK FROM THE FIRST TO THE LAST DAY OF RADIOTHERAPY
     Route: 048
  2. TEMOZOLOMIDE [Suspect]
     Dosage: ADJUVANT TEMOZOLOMIDE 150-200 MG/CM^2 FOR 5 DAYS DURING EACH 28 DAY CYCLE
     Route: 048
  3. SULFASALAZINE [Suspect]
     Dosage: DAILY DOSES OF 1,2 OR 4 G
     Route: 048

REACTIONS (3)
  - Haematotoxicity [Unknown]
  - Neutropenia [Unknown]
  - Leukopenia [Unknown]
